FAERS Safety Report 17572958 (Version 1)
Quarter: 2020Q1

REPORT INFORMATION
  Report Type: Spontaneous
  Country: US (occurrence: US)
  Receive Date: 20200323
  Receipt Date: 20200323
  Transmission Date: 20200409
  Serious: Yes (Hospitalization, Other)
  Sender: FDA-Public Use
  Company Number: US-BAYER-2019-073648

PATIENT
  Age: 91 Year
  Sex: Male

DRUGS (4)
  1. XARELTO [Suspect]
     Active Substance: RIVAROXABAN
     Indication: ATRIAL FIBRILLATION
     Dosage: 15 MG, QD
     Route: 048
     Dates: start: 20140729, end: 201609
  2. GENUINE BAYER ASPIRIN [Suspect]
     Active Substance: ASPIRIN
     Indication: ATRIAL FIBRILLATION
     Dosage: 325 NG, QD
     Route: 048
     Dates: end: 201609
  3. PRADAXA [Suspect]
     Active Substance: DABIGATRAN ETEXILATE MESYLATE
     Indication: ATRIAL FIBRILLATION
     Dosage: UNK
     Route: 065
     Dates: end: 201609
  4. XARELTO [Suspect]
     Active Substance: RIVAROXABAN
     Indication: CEREBROVASCULAR ACCIDENT PROPHYLAXIS
     Dosage: 15 MG, QD
     Route: 048
     Dates: end: 20170202

REACTIONS (3)
  - Gastritis erosive [Recovered/Resolved]
  - Haemoptysis [Recovering/Resolving]
  - Gastric haemorrhage [Recovered/Resolved]

NARRATIVE: CASE EVENT DATE: 201608
